FAERS Safety Report 23088262 (Version 1)
Quarter: 2023Q4

REPORT INFORMATION
  Report Type: Spontaneous
  Country: DE (occurrence: DE)
  Receive Date: 20231020
  Receipt Date: 20231020
  Transmission Date: 20240110
  Serious: Yes (Other)
  Sender: FDA-Public Use
  Company Number: DE-NOVPHSZ-PHHY2018DE060097

PATIENT
  Age: 23 Year
  Sex: Female

DRUGS (6)
  1. DULOXETINE [Suspect]
     Active Substance: DULOXETINE
     Indication: Radiculopathy
     Dosage: UNK
     Route: 065
  2. DULOXETINE [Suspect]
     Active Substance: DULOXETINE
     Indication: Neuralgia
  3. LIDOCAINE [Suspect]
     Active Substance: LIDOCAINE
     Indication: Radiculopathy
     Dosage: UNK
     Route: 061
  4. NALOXONE [Suspect]
     Active Substance: NALOXONE
     Indication: Radiculopathy
     Dosage: UNK
     Route: 065
  5. TILIDINE [Suspect]
     Active Substance: TILIDINE
     Indication: Neuralgia
     Dosage: UNK
     Route: 065
  6. TAPENTADOL [Suspect]
     Active Substance: TAPENTADOL
     Indication: Neuralgia
     Dosage: 300 MILLIGRAM
     Route: 065

REACTIONS (5)
  - Cognitive disorder [Unknown]
  - Drug ineffective for unapproved indication [Unknown]
  - Product use in unapproved indication [Unknown]
  - Therapeutic response decreased [Unknown]
  - Therapeutic product effect incomplete [Unknown]
